FAERS Safety Report 17324082 (Version 1)
Quarter: 2020Q1

REPORT INFORMATION
  Report Type: Spontaneous
  Country: US (occurrence: US)
  Receive Date: 20200127
  Receipt Date: 20200127
  Transmission Date: 20200409
  Serious: No
  Sender: FDA-Public Use
  Company Number: US-009507513-2001USA003953

PATIENT
  Sex: Female

DRUGS (1)
  1. NUVARING [Suspect]
     Active Substance: ETHINYL ESTRADIOL\ETONOGESTREL
     Dosage: DOSE/FREQUENCY 2 RINS
     Route: 067
     Dates: start: 201912

REACTIONS (6)
  - Sinusitis [Not Recovered/Not Resolved]
  - Muscle spasms [Not Recovered/Not Resolved]
  - Device kink [Unknown]
  - Inappropriate schedule of product administration [Unknown]
  - Intentional medical device removal by patient [Unknown]
  - Overdose [Unknown]

NARRATIVE: CASE EVENT DATE: 201912
